FAERS Safety Report 9687303 (Version 3)
Quarter: 2014Q2

REPORT INFORMATION
  Report Type: Report from Study
  Country: CO (occurrence: CO)
  Receive Date: 20131114
  Receipt Date: 20140506
  Transmission Date: 20141212
  Serious: Yes (Other)
  Sender: FDA-Public Use
  Company Number: CO-ROCHE-1303623

PATIENT
  Age: 58 Year
  Sex: Female

DRUGS (3)
  1. LUCENTIS [Suspect]
     Indication: BLINDNESS
     Route: 050
     Dates: start: 201306
  2. LUCENTIS [Suspect]
     Indication: MACULAR DEGENERATION
     Route: 050
     Dates: start: 20131028
  3. CIPROFLOXACIN HYDROCHLORIDE [Concomitant]

REACTIONS (2)
  - Eye infection [Recovering/Resolving]
  - Retinal detachment [Unknown]
